FAERS Safety Report 13906023 (Version 3)
Quarter: 2018Q1

REPORT INFORMATION
  Report Type: Spontaneous
  Country: CA (occurrence: CA)
  Receive Date: 20170825
  Receipt Date: 20180322
  Transmission Date: 20180508
  Serious: Yes (Other)
  Sender: FDA-Public Use
  Company Number: CA-ELI_LILLY_AND_COMPANY-CA201708007530

PATIENT
  Sex: Female

DRUGS (21)
  1. APO-CITALOPRAM [Suspect]
     Active Substance: CITALOPRAM HYDROBROMIDE
     Indication: ANXIETY
  2. APO-PIROXICAM [Suspect]
     Active Substance: PIROXICAM
     Indication: ANXIETY
  3. XANAX [Suspect]
     Active Substance: ALPRAZOLAM
     Indication: DEPRESSION
  4. APO-CITALOPRAM [Suspect]
     Active Substance: CITALOPRAM HYDROBROMIDE
     Indication: DEPRESSION
  5. XANAX [Suspect]
     Active Substance: ALPRAZOLAM
     Indication: ANXIETY
  6. XANAX [Suspect]
     Active Substance: ALPRAZOLAM
     Indication: PANIC ATTACK
     Dosage: UNK, UNKNOWN
     Route: 065
  7. APO-BUSPIRONE [Suspect]
     Active Substance: BUSPIRONE HYDROCHLORIDE
     Indication: ANXIETY
  8. APO-CLONAZEPAM [Suspect]
     Active Substance: CLONAZEPAM
     Indication: DEPRESSION
  9. PROZAC [Suspect]
     Active Substance: FLUOXETINE HYDROCHLORIDE
     Indication: DEPRESSION
  10. APO-BUSPIRONE [Suspect]
     Active Substance: BUSPIRONE HYDROCHLORIDE
     Indication: DEPRESSION
  11. APO-CLONAZEPAM [Suspect]
     Active Substance: CLONAZEPAM
     Indication: PANIC ATTACK
     Dosage: UNK, UNKNOWN
     Route: 065
  12. APO-PIROXICAM [Suspect]
     Active Substance: PIROXICAM
     Indication: DEPRESSION
  13. SERTRALINE HYDROCHLORIDE. [Suspect]
     Active Substance: SERTRALINE HYDROCHLORIDE
     Indication: ANXIETY
  14. PROZAC [Suspect]
     Active Substance: FLUOXETINE HYDROCHLORIDE
     Indication: PANIC ATTACK
     Dosage: UNK, UNKNOWN
     Route: 065
  15. PROZAC [Suspect]
     Active Substance: FLUOXETINE HYDROCHLORIDE
     Indication: ANXIETY
  16. APO-BUSPIRONE [Suspect]
     Active Substance: BUSPIRONE HYDROCHLORIDE
     Indication: PANIC ATTACK
     Dosage: UNK, UNKNOWN
     Route: 065
  17. APO-CITALOPRAM [Suspect]
     Active Substance: CITALOPRAM HYDROBROMIDE
     Indication: PANIC ATTACK
     Dosage: UNK, UNKNOWN
     Route: 065
  18. APO-PIROXICAM [Suspect]
     Active Substance: PIROXICAM
     Indication: PANIC ATTACK
     Dosage: UNK, UNKNOWN
     Route: 065
  19. SERTRALINE HYDROCHLORIDE. [Suspect]
     Active Substance: SERTRALINE HYDROCHLORIDE
     Indication: PANIC ATTACK
     Dosage: UNK, UNKNOWN
     Route: 065
  20. APO-CLONAZEPAM [Suspect]
     Active Substance: CLONAZEPAM
     Indication: ANXIETY
  21. SERTRALINE HYDROCHLORIDE. [Suspect]
     Active Substance: SERTRALINE HYDROCHLORIDE
     Indication: DEPRESSION

REACTIONS (3)
  - Drug withdrawal syndrome [Unknown]
  - Drug ineffective [Unknown]
  - Drug use disorder [Unknown]
